FAERS Safety Report 19702003 (Version 14)
Quarter: 2024Q1

REPORT INFORMATION
  Report Type: Report from Study
  Country: AR (occurrence: AR)
  Receive Date: 20210813
  Receipt Date: 20240208
  Transmission Date: 20240410
  Serious: Yes (Hospitalization, Other)
  Sender: FDA-Public Use
  Company Number: AR-NOVARTISPH-NVSC2021AR129029

PATIENT
  Age: 54 Year
  Sex: Female

DRUGS (2)
  1. COSENTYX [Suspect]
     Active Substance: SECUKINUMAB
     Indication: Psoriatic arthropathy
     Dosage: 150 MG, QMO
     Route: 058
     Dates: start: 20191217, end: 20210917
  2. COSENTYX [Suspect]
     Active Substance: SECUKINUMAB
     Dosage: 150 MG, QMO
     Route: 058
     Dates: end: 202109

REACTIONS (19)
  - Urinary tract infection [Unknown]
  - Renal pain [Unknown]
  - Obstructive airways disorder [Unknown]
  - Pneumonia [Unknown]
  - Renal haemorrhage [Unknown]
  - Injection site urticaria [Unknown]
  - Hypoaesthesia [Unknown]
  - Bronchitis [Unknown]
  - Secretion discharge [Unknown]
  - Pyrexia [Unknown]
  - Peripheral swelling [Unknown]
  - COVID-19 [Unknown]
  - SARS-CoV-2 test positive [Recovered/Resolved with Sequelae]
  - Fatigue [Unknown]
  - Agitation [Unknown]
  - Influenza [Unknown]
  - Pain in extremity [Unknown]
  - Arthralgia [Unknown]
  - Mobility decreased [Unknown]

NARRATIVE: CASE EVENT DATE: 20210522
